FAERS Safety Report 17451324 (Version 1)
Quarter: 2020Q1

REPORT INFORMATION
  Report Type: Spontaneous
  Country: US (occurrence: US)
  Receive Date: 20200223
  Receipt Date: 20200223
  Transmission Date: 20200409
  Serious: Yes (Hospitalization)
  Sender: FDA-Public Use
  Company Number: None

PATIENT
  Age: 53 Year
  Sex: Female
  Weight: 74.8 kg

DRUGS (5)
  1. FAMOTIDINE 20MG IV [Concomitant]
     Dates: start: 20191207, end: 20191207
  2. CETIRIZINE 10MG PO [Concomitant]
     Dates: start: 20191207, end: 20191207
  3. SOLUMEDROL 125MG IV [Concomitant]
     Dates: start: 20191207, end: 20191207
  4. ATEZOLIZUMAB. [Suspect]
     Active Substance: ATEZOLIZUMAB
     Indication: SMALL CELL LUNG CANCER
     Route: 042
     Dates: start: 20191207, end: 20191207
  5. BENADRYL [Concomitant]
     Active Substance: DIPHENHYDRAMINE HYDROCHLORIDE
     Dates: start: 20191207, end: 20191207

REACTIONS (5)
  - Wheezing [None]
  - Dyspnoea [None]
  - Infusion related reaction [None]
  - Chest discomfort [None]
  - Flushing [None]

NARRATIVE: CASE EVENT DATE: 20191207
